FAERS Safety Report 8218200-1 (Version None)
Quarter: 2012Q1

REPORT INFORMATION
  Report Type: 
  Country: None (occurrence: None)
  Receive Date: 20120319
  Receipt Date: 20120314
  Transmission Date: 20120608
  Serious: Yes (Death, Hospitalization)
  Sender: FDA-Public Use
  Company Number: JP-UCBSA-8046979

PATIENT
  Age: 45 Year
  Sex: Male
  Weight: 57.5 kg

DRUGS (17)
  1. CERTOLIZUMAB PEGOL [Suspect]
     Dosage: RA0007
     Route: 058
     Dates: start: 20090731
  2. LOXOPROFEN SODIUM [Concomitant]
     Dosage: DAILY DOSE: 60MG  (PRN)
     Dates: start: 20110802, end: 20120109
  3. RABEPRAZOLE SODIUM [Concomitant]
     Dosage: DAILY DOSE: 10MG (PRN)
     Dates: start: 20110802, end: 20120110
  4. BETAMETHASONE BUTYRATE PROPIONATE [Concomitant]
     Dates: start: 20111023, end: 20120110
  5. HEPARIN [Concomitant]
     Dates: start: 20111023, end: 20120110
  6. CERTOLIZUMAB PEGOL [Suspect]
     Dosage: RA0007
     Route: 058
     Dates: start: 20100729, end: 20100101
  7. PREDNISOLONE [Suspect]
     Dosage: DAILY DOSE: 5MG
     Route: 048
     Dates: start: 20100703, end: 20120110
  8. CERTOLIZUMAB PEGOL [Suspect]
     Route: 058
  9. PREDNISOLONE [Suspect]
     Indication: RHEUMATOID ARTHRITIS
     Dosage: DAILY DOSE: 3 MG
     Route: 048
     Dates: start: 20090310, end: 20091118
  10. PROGRAF [Suspect]
     Dosage: DAILY DOSE: 3MG
     Route: 048
     Dates: start: 20100921, end: 20120110
  11. RABEPRAZOLE SODIUM [Concomitant]
     Dosage: DAILY DOSE: 10MG
     Dates: start: 20081114, end: 20110801
  12. PROGRAF [Suspect]
     Indication: RHEUMATOID ARTHRITIS
     Route: 048
     Dates: start: 20081212, end: 20090519
  13. PROGRAF [Suspect]
     Dosage: DAILY DOSE:2MG
     Route: 048
     Dates: start: 20090525
  14. LOXOPROFEN SODIUM [Concomitant]
     Dates: start: 20081114, end: 20101216
  15. CERTOLIZUMAB PEGOL [Suspect]
     Route: 058
     Dates: start: 20101019, end: 20111202
  16. CERTOLIZUMAB PEGOL [Suspect]
     Indication: RHEUMATOID ARTHRITIS
     Route: 058
     Dates: start: 20090109
  17. PREDNISOLONE [Suspect]
     Indication: RHEUMATOID ARTHRITIS
     Dosage: DAILY DOSE: 5 MG
     Route: 048
     Dates: start: 20090207, end: 20100316

REACTIONS (2)
  - COMPLETED SUICIDE [None]
  - ILEITIS [None]
